FAERS Safety Report 17540988 (Version 2)
Quarter: 2020Q3

REPORT INFORMATION
  Report Type: Report from Study
  Country: None (occurrence: US)
  Receive Date: 20200314
  Receipt Date: 20200918
  Transmission Date: 20201102
  Serious: Yes (Hospitalization, Other)
  Sender: FDA-Public Use
  Company Number: US-ABBVIE-20K-163-3311498-00

PATIENT
  Age: 73 Year
  Sex: Male
  Weight: 83.99 kg

DRUGS (3)
  1. VENCLEXTA [Suspect]
     Active Substance: VENETOCLAX
     Indication: ACUTE MYELOID LEUKAEMIA
     Route: 048
     Dates: end: 2020
  2. ISOXSUPRINE [Concomitant]
     Active Substance: ISOXSUPRINE
     Indication: NAUSEA
  3. VENCLEXTA [Suspect]
     Active Substance: VENETOCLAX
     Indication: CHRONIC LYMPHOCYTIC LEUKAEMIA
     Route: 048
     Dates: start: 201908, end: 201912

REACTIONS (5)
  - Haemoglobin decreased [Recovering/Resolving]
  - Dizziness [Recovered/Resolved]
  - Asthenia [Recovered/Resolved]
  - Off label use [Unknown]
  - Bone marrow transplant [Recovered/Resolved]

NARRATIVE: CASE EVENT DATE: 2018
